FAERS Safety Report 4296396-4 (Version None)
Quarter: 2004Q1

REPORT INFORMATION
  Report Type: 
  Country: None (occurrence: None)
  Receive Date: 20040213
  Receipt Date: 20040213
  Transmission Date: 20041129
  Serious: No
  Sender: FDA-Public Use
  Company Number: None

PATIENT
  Age: 43 Year
  Sex: Male

DRUGS (1)
  1. LEVAQUIN [Suspect]
     Dosage: 500 MG IV X 1
     Route: 042
     Dates: start: 20040213

REACTIONS (3)
  - ERYTHEMA [None]
  - POST PROCEDURAL PAIN [None]
  - SWELLING [None]
